FAERS Safety Report 9309201 (Version 1)
Quarter: 2013Q2

REPORT INFORMATION
  Report Type: Spontaneous
  Country: US (occurrence: US)
  Receive Date: 20130525
  Receipt Date: 20130525
  Transmission Date: 20140414
  Serious: No
  Sender: FDA-Public Use
  Company Number: US-BRISTOL-MYERS SQUIBB COMPANY-18697656

PATIENT
  Sex: Female

DRUGS (2)
  1. BYDUREON [Suspect]
     Route: 058
     Dates: start: 20130225
  2. BYETTA [Suspect]
     Route: 058

REACTIONS (1)
  - Incorrect dose administered [Unknown]
